FAERS Safety Report 8227827-2 (Version None)
Quarter: 2012Q1

REPORT INFORMATION
  Report Type: 
  Country: None (occurrence: None)
  Receive Date: 20120322
  Receipt Date: 20120315
  Transmission Date: 20120608
  Serious: Yes (Hospitalization)
  Sender: FDA-Public Use
  Company Number: US-BAYER-2011-072191

PATIENT
  Age: 45 Year
  Sex: Female
  Weight: 74.376 kg

DRUGS (6)
  1. VITAMIN D [Concomitant]
     Indication: MEDICAL DIET
     Dosage: UNK
     Dates: start: 20090701
  2. YAZ [Suspect]
     Indication: MENORRHAGIA
  3. DOXYCYCLINE HYCLATE [Concomitant]
     Dosage: 100 MG, UNK
     Dates: start: 20090713
  4. YAZ [Suspect]
     Indication: PREMENSTRUAL SYNDROME
     Dosage: UNK
     Dates: start: 20090501, end: 20090701
  5. ZOCOR [Concomitant]
     Indication: BLOOD CHOLESTEROL INCREASED
     Dosage: UNK
     Dates: start: 20090701
  6. OXYCODONE HCL AND ACETAMINOPHEN [Concomitant]

REACTIONS (7)
  - EMOTIONAL DISTRESS [None]
  - PULMONARY EMBOLISM [None]
  - INJURY [None]
  - FEAR [None]
  - ANXIETY [None]
  - PSYCHOLOGICAL TRAUMA [None]
  - PAIN [None]
